FAERS Safety Report 24818457 (Version 1)
Quarter: 2025Q1

REPORT INFORMATION
  Report Type: Spontaneous
  Country: IT (occurrence: IT)
  Receive Date: 20250108
  Receipt Date: 20250108
  Transmission Date: 20250409
  Serious: Yes (Life-Threatening)
  Sender: HIKMA
  Company Number: None

PATIENT
  Age: 60 Year
  Sex: Female

DRUGS (1)
  1. AMIODARONE [Suspect]
     Active Substance: AMIODARONE
     Indication: Cardioversion
     Route: 042

REACTIONS (3)
  - Erythema [Recovered/Resolved]
  - Throat tightness [Recovered/Resolved]
  - Chest pain [Recovered/Resolved]
